FAERS Safety Report 9730567 (Version 2)
Quarter: 2014Q1

REPORT INFORMATION
  Report Type: Spontaneous
  Country: US (occurrence: US)
  Receive Date: 20131202
  Receipt Date: 20140102
  Transmission Date: 20141002
  Serious: No
  Sender: FDA-Public Use
  Company Number: US-AMGEN-USASP2013078202

PATIENT
  Age: 29 Year
  Sex: Female
  Weight: 81.18 kg

DRUGS (5)
  1. ENBREL [Suspect]
     Indication: PSORIATIC ARTHROPATHY
     Dosage: 50 MG/ML, QWK
     Route: 058
  2. ENBREL [Suspect]
     Indication: PSORIASIS
  3. TRINESSA [Concomitant]
     Dosage: 0.18/0.215/0.25 MG-35 MCG
     Route: 048
  4. LEVETIRACETAM [Concomitant]
     Dosage: 500 MG, BID
     Route: 048
  5. TACLONEX [Concomitant]
     Indication: PSORIASIS
     Dosage: 0.005-0.064 %, BID

REACTIONS (5)
  - Erythema [Unknown]
  - Vomiting [Recovered/Resolved]
  - Intertrigo [Unknown]
  - Bronchitis [Recovered/Resolved]
  - Sinusitis [Not Recovered/Not Resolved]
